FAERS Safety Report 4829654-2 (Version None)
Quarter: 2005Q4

REPORT INFORMATION
  Report Type: 
  Country: None (occurrence: None)
  Receive Date: 20051027
  Receipt Date: 20050510
  Transmission Date: 20060501
  Serious: Yes (Other)
  Sender: FDA-Public Use
  Company Number: HQWYE688312MAY05

PATIENT
  Age: 68 Year
  Sex: Female

DRUGS (3)
  1. PREMARIN [Suspect]
     Dosage: ORAL
     Route: 048
  2. NICORETTE DS [Suspect]
     Indication: SMOKING CESSATION THERAPY
     Dosage: 2 MG, BUCCAL
     Route: 002
  3. PROVERA [Suspect]
     Dosage: ORAL
     Route: 048

REACTIONS (1)
  - VAGINAL HAEMORRHAGE [None]
